FAERS Safety Report 26017731 (Version 3)
Quarter: 2025Q4

REPORT INFORMATION
  Report Type: Spontaneous
  Country: TR (occurrence: TR)
  Receive Date: 20251110
  Receipt Date: 20251203
  Transmission Date: 20260118
  Serious: Yes (Other)
  Sender: AMGEN
  Company Number: TR-AMGEN-TURSP2025220096

PATIENT

DRUGS (4)
  1. BEVACIZUMAB [Suspect]
     Active Substance: BEVACIZUMAB
     Indication: Malignant peritoneal neoplasm
     Dosage: UNK
     Route: 065
  2. CISPLATIN [Concomitant]
     Active Substance: CISPLATIN
     Dosage: 75 MILLIGRAM/SQ. METER, ON DAY 1 OF A 21-DAY CYCLE FOR 6 CYCLES
     Route: 040
  3. PEMETREXED [Concomitant]
     Active Substance: PEMETREXED
     Dosage: 500 MILLIGRAM/SQ. METER, ON DAY 1 OF A 21-DAY CYCLE FOR 6 CYCLES
     Route: 040
  4. CARBOPLATIN [Concomitant]
     Active Substance: CARBOPLATIN
     Dosage: AREA UNDER THE CURVE 5, ON DAY 1 OF A 21-DAY CYCLE FOR 6 CYCLES
     Route: 040

REACTIONS (2)
  - Malignant peritoneal neoplasm [Unknown]
  - Therapy partial responder [Unknown]
